FAERS Safety Report 20894525 (Version 2)
Quarter: 2022Q2

REPORT INFORMATION
  Report Type: Report from Study
  Country: US (occurrence: US)
  Receive Date: 20220531
  Receipt Date: 20220627
  Transmission Date: 20220720
  Serious: Yes (Other)
  Sender: FDA-Public Use
  Company Number: US-BRISTOL-MYERS SQUIBB COMPANY-2022-044205

PATIENT
  Age: 74 Year
  Sex: Female
  Weight: 77.111 kg

DRUGS (2)
  1. REVLIMID [Suspect]
     Active Substance: LENALIDOMIDE
     Indication: Plasma cell myeloma
     Dosage: FOR 14 DAYS, 7 DAYS OFF
     Route: 048
     Dates: start: 20220309
  2. REVLIMID [Suspect]
     Active Substance: LENALIDOMIDE
     Indication: Product used for unknown indication
     Dosage: 21/BTL, DAILY 14 DAYS
     Route: 048
     Dates: start: 20220309

REACTIONS (5)
  - Weight decreased [Unknown]
  - Decreased appetite [Unknown]
  - Hypotension [Unknown]
  - Tooth disorder [Unknown]
  - Off label use [Unknown]
